FAERS Safety Report 11564076 (Version 1)
Quarter: 2015Q3

REPORT INFORMATION
  Report Type: Spontaneous
  Country: US (occurrence: US)
  Receive Date: 20150928
  Receipt Date: 20150928
  Transmission Date: 20151125
  Serious: Yes (Death, Hospitalization, Other)
  Sender: FDA-Public Use
  Company Number: US-MYLANLABS-2015M1031841

PATIENT

DRUGS (4)
  1. NORTHERA [Suspect]
     Active Substance: DROXIDOPA
     Indication: AUTONOMIC FAILURE SYNDROME
     Dosage: 100 MG, TID FOR 2 DAYS
     Dates: start: 20150423
  2. NORTHERA [Suspect]
     Active Substance: DROXIDOPA
     Indication: ORTHOSTATIC HYPOTENSION
  3. MIDODRINE [Suspect]
     Active Substance: MIDODRINE
     Indication: SYNCOPE
     Dosage: UNK
     Dates: start: 201504
  4. NORTHERA [Suspect]
     Active Substance: DROXIDOPA
     Indication: NEUROPATHY PERIPHERAL
     Dosage: TID, PER TITRATION B SCHEDULE

REACTIONS (5)
  - Pericardial effusion [Recovered/Resolved]
  - Acute kidney injury [Unknown]
  - Acute respiratory failure [Fatal]
  - Ventricular tachycardia [Recovered/Resolved]
  - Hypotension [Not Recovered/Not Resolved]

NARRATIVE: CASE EVENT DATE: 201504
